FAERS Safety Report 16510685 (Version 1)
Quarter: 2019Q3

REPORT INFORMATION
  Report Type: Spontaneous
  Country: US (occurrence: US)
  Receive Date: 20190701
  Receipt Date: 20190701
  Transmission Date: 20191004
  Serious: Yes (Hospitalization, Disabling)
  Sender: FDA-Public Use
  Company Number: None

PATIENT
  Age: 27 Year
  Sex: Male
  Weight: 74.25 kg

DRUGS (1)
  1. CLONAZEPAM. [Suspect]
     Active Substance: CLONAZEPAM
     Indication: ABDOMINAL DISCOMFORT
     Dosage: ?          QUANTITY:1 TABLET(S);?
     Route: 048
     Dates: start: 20161001, end: 20190221

REACTIONS (12)
  - Drug dependence [None]
  - Gynaecomastia [None]
  - Rash [None]
  - Hyperhidrosis [None]
  - Tremor [None]
  - Depression [None]
  - Insomnia [None]
  - Libido decreased [None]
  - Skin burning sensation [None]
  - Fluid retention [None]
  - Swelling [None]
  - Quality of life decreased [None]

NARRATIVE: CASE EVENT DATE: 20170701
